FAERS Safety Report 9518781 (Version 2)
Quarter: 2013Q3

REPORT INFORMATION
  Report Type: Spontaneous
  Country: IT (occurrence: IT)
  Receive Date: 20130912
  Receipt Date: 20130924
  Transmission Date: 20140515
  Serious: No
  Sender: FDA-Public Use
  Company Number: IT-009507513-1309ITA001442

PATIENT
  Age: 67 Year
  Sex: Male

DRUGS (4)
  1. VICTRELIS [Suspect]
     Indication: CHRONIC HEPATITIS C
     Dosage: 2400 MG, DAILY
     Route: 048
     Dates: start: 20130423
  2. COPEGUS [Suspect]
     Indication: CHRONIC HEPATITIS C
     Dosage: 1000 MG, DAILY
     Route: 048
     Dates: start: 20130326, end: 20130506
  3. COPEGUS [Suspect]
     Dosage: 800 MG, DAILY
     Route: 048
     Dates: start: 20130506
  4. PEGASYS [Suspect]
     Indication: CHRONIC HEPATITIS C
     Dosage: 180 MICROGRAM, WEEKLY
     Route: 058
     Dates: start: 20130326

REACTIONS (2)
  - Oropharyngeal pain [Not Recovered/Not Resolved]
  - Anaemia [Not Recovered/Not Resolved]
